FAERS Safety Report 5130201-9 (Version None)
Quarter: 2006Q4

REPORT INFORMATION
  Report Type: 
  Country: None (occurrence: None)
  Receive Date: 20061013
  Receipt Date: 20061002
  Transmission Date: 20070319
  Serious: Yes (Death)
  Sender: FDA-Public Use
  Company Number: 2006000640

PATIENT
  Age: 3 Year
  Sex: Female

DRUGS (1)
  1. ROXICODONE [Suspect]
     Dosage: ORAL
     Route: 048

REACTIONS (7)
  - ACCIDENTAL DRUG INTAKE BY CHILD [None]
  - ANALGESIC DRUG LEVEL INCREASED [None]
  - CEREBRAL ISCHAEMIA [None]
  - HEART RATE INCREASED [None]
  - INJURY [None]
  - LOSS OF CONSCIOUSNESS [None]
  - RESPIRATORY ARREST [None]
